FAERS Safety Report 18791382 (Version 2)
Quarter: 2021Q1

REPORT INFORMATION
  Report Type: Report from Study
  Country: IT (occurrence: IT)
  Receive Date: 20210126
  Receipt Date: 20210203
  Transmission Date: 20210419
  Serious: Yes (Other)
  Sender: FDA-Public Use
  Company Number: IT-CELGENEUS-ITA-20180303931

PATIENT
  Age: 79 Year
  Sex: Male
  Weight: 65 kg

DRUGS (5)
  1. CC?5013 [Suspect]
     Active Substance: LENALIDOMIDE
     Dosage: MAINTENANCE
     Route: 048
     Dates: end: 201710
  2. METHOTREXATE. [Concomitant]
     Active Substance: METHOTREXATE
     Indication: CYTOREDUCTIVE SURGERY
     Route: 041
     Dates: start: 20180425, end: 20200907
  3. VINCRISTINA [Concomitant]
     Active Substance: VINCRISTINE
     Indication: CYTOREDUCTIVE SURGERY
     Route: 041
     Dates: start: 20180307, end: 20180424
  4. CC?5013 [Suspect]
     Active Substance: LENALIDOMIDE
     Indication: CHRONIC LYMPHOCYTIC LEUKAEMIA
     Route: 048
     Dates: start: 20130718
  5. PURINETHOL [Concomitant]
     Active Substance: MERCAPTOPURINE
     Indication: CYTOREDUCTIVE SURGERY
     Route: 041
     Dates: start: 20180425, end: 20200907

REACTIONS (1)
  - Acute lymphocytic leukaemia [Not Recovered/Not Resolved]

NARRATIVE: CASE EVENT DATE: 20180306
